FAERS Safety Report 9321323 (Version 3)
Quarter: 2015Q2

REPORT INFORMATION
  Report Type: Report from Study
  Country: JP (occurrence: JP)
  Receive Date: 20130531
  Receipt Date: 20150513
  Transmission Date: 20150821
  Serious: Yes (Hospitalization)
  Sender: FDA-Public Use
  Company Number: JP-ASTELLAS-2012JP005062

PATIENT
  Age: 17 Year
  Sex: Female
  Weight: 29 kg

DRUGS (35)
  1. PREDNISOLONE. [Concomitant]
     Active Substance: PREDNISOLONE
     Indication: LUPUS NEPHRITIS
     Route: 048
     Dates: end: 20080131
  2. GASTER [Concomitant]
     Active Substance: FAMOTIDINE
     Route: 048
  3. JUVELA [Concomitant]
     Active Substance: .ALPHA.-TOCOPHEROL\RETINOL
     Indication: CHILLBLAINS
     Dosage: UNK UNK, UNKNOWN FREQ.
     Route: 061
     Dates: start: 20080228, end: 20080327
  4. PANVITAN                           /05664201/ [Concomitant]
     Indication: PROPHYLAXIS
     Dosage: 0.67 MG, ONCE DAILY
     Route: 048
  5. PREDNISOLONE. [Concomitant]
     Active Substance: PREDNISOLONE
     Route: 048
     Dates: start: 20130105, end: 20130121
  6. PREDNISOLONE. [Concomitant]
     Active Substance: PREDNISOLONE
     Route: 048
     Dates: start: 20130524
  7. METHYCOBAL [Concomitant]
     Active Substance: METHYLCOBALAMIN
     Indication: ULNAR NERVE PALSY
     Route: 048
     Dates: start: 20121211
  8. PANVITAN                           /05664201/ [Concomitant]
     Indication: ULNAR NERVE PALSY
     Route: 048
     Dates: start: 20121211
  9. BAYASPIRIN [Concomitant]
     Active Substance: ASPIRIN
     Indication: PROPHYLAXIS
  10. TACROLIMUS. [Suspect]
     Active Substance: TACROLIMUS
     Route: 048
     Dates: start: 20131004
  11. PREDNISOLONE. [Concomitant]
     Active Substance: PREDNISOLONE
     Route: 048
     Dates: start: 20080328, end: 20080424
  12. PREDNISOLONE. [Concomitant]
     Active Substance: PREDNISOLONE
     Route: 048
     Dates: start: 20121215, end: 20121217
  13. PREDNISOLONE. [Concomitant]
     Active Substance: PREDNISOLONE
     Route: 048
     Dates: start: 20130122, end: 20130225
  14. PREDNISOLONE. [Concomitant]
     Active Substance: PREDNISOLONE
     Route: 048
     Dates: start: 20130226, end: 20130325
  15. METHYLPREDNISOLONE. [Concomitant]
     Active Substance: METHYLPREDNISOLONE
     Route: 065
     Dates: start: 20121218, end: 20121220
  16. CELECOX [Concomitant]
     Active Substance: CELECOXIB
     Indication: ARTHRALGIA
     Dosage: UNK, UNKNOWN FREQ.
     Route: 048
     Dates: start: 20081225
  17. METHYCOBAL [Concomitant]
     Active Substance: METHYLCOBALAMIN
     Indication: PROPHYLAXIS
     Route: 048
  18. PREDNISOLONE. [Concomitant]
     Active Substance: PREDNISOLONE
     Route: 048
     Dates: start: 20080201, end: 20080227
  19. PREDNISOLONE. [Concomitant]
     Active Substance: PREDNISOLONE
     Route: 048
     Dates: start: 20130326, end: 20130523
  20. MOHRUS [Concomitant]
     Active Substance: KETOPROFEN
     Indication: BACK PAIN
     Dosage: UNK UNK, UNKNOWN FREQ.
     Route: 061
     Dates: start: 20080327, end: 20080427
  21. MOHRUS [Concomitant]
     Active Substance: KETOPROFEN
     Route: 061
  22. RINDERON VG [Concomitant]
     Active Substance: BETAMETHASONE VALERATE\GENTAMICIN SULFATE
     Indication: ECZEMA
     Dosage: UNK UNK, UNKNOWN FREQ.
     Route: 061
     Dates: start: 20081225, end: 20090121
  23. BAYASPIRIN [Concomitant]
     Active Substance: ASPIRIN
     Indication: ULNAR NERVE PALSY
     Route: 048
     Dates: start: 20130107
  24. PREDNISOLONE. [Concomitant]
     Active Substance: PREDNISOLONE
     Route: 048
     Dates: start: 20121221, end: 20130104
  25. METHYLPREDNISOLONE. [Concomitant]
     Active Substance: METHYLPREDNISOLONE
     Indication: LUPUS NEPHRITIS
     Route: 065
     Dates: start: 20121212, end: 20121214
  26. CERCINE [Concomitant]
     Active Substance: DIAZEPAM
     Indication: INSOMNIA
     Route: 048
     Dates: start: 20121211, end: 20121213
  27. GASTER [Concomitant]
     Active Substance: FAMOTIDINE
     Indication: PROPHYLAXIS
     Route: 048
     Dates: start: 20071227
  28. JUVELA [Concomitant]
     Active Substance: .ALPHA.-TOCOPHEROL\RETINOL
     Route: 061
     Dates: end: 20120510
  29. PREDNISOLONE. [Concomitant]
     Active Substance: PREDNISOLONE
     Route: 048
     Dates: start: 20080228, end: 20080327
  30. RINDERON VG [Concomitant]
     Active Substance: BETAMETHASONE VALERATE\GENTAMICIN SULFATE
     Dosage: UNK UNK, UNKNOWN FREQ.
     Route: 061
  31. NEUROTROPIN [Concomitant]
     Active Substance: NEUROTROPIN
     Indication: FIBROMYALGIA
     Dosage: UNK UNK, UNKNOWN FREQ.
     Route: 048
  32. ONON [Concomitant]
     Active Substance: PRANLUKAST
     Indication: COLD URTICARIA
     Route: 048
     Dates: start: 20100722, end: 20111103
  33. IMIGRAN                            /01044802/ [Concomitant]
     Active Substance: SUMATRIPTAN
     Indication: MIGRAINE
     Route: 048
     Dates: start: 20111110, end: 20120510
  34. TACROLIMUS. [Suspect]
     Active Substance: TACROLIMUS
     Indication: LUPUS NEPHRITIS
     Route: 048
     Dates: start: 20070222, end: 20131003
  35. PREDNISOLONE. [Concomitant]
     Active Substance: PREDNISOLONE
     Route: 048
     Dates: start: 20080425, end: 20121211

REACTIONS (5)
  - Ulnar nerve palsy [Recovering/Resolving]
  - Migraine [Recovering/Resolving]
  - Acne [Recovered/Resolved]
  - Insomnia [Recovering/Resolving]
  - Off label use [Unknown]

NARRATIVE: CASE EVENT DATE: 20111020
